FAERS Safety Report 13837137 (Version 1)
Quarter: 2017Q3

REPORT INFORMATION
  Report Type: Spontaneous
  Country: US (occurrence: US)
  Receive Date: 20170804
  Receipt Date: 20170804
  Transmission Date: 20171127
  Serious: No
  Sender: FDA-Public Use
  Company Number: US-ROCHE-566228

PATIENT
  Age: 81 Year
  Sex: Female

DRUGS (4)
  1. DIURETIC NOS [Concomitant]
     Active Substance: UNSPECIFIED INGREDIENT
     Route: 065
  2. HYPOGLYCEMICS [Concomitant]
     Route: 048
  3. BONIVA [Suspect]
     Active Substance: IBANDRONATE SODIUM
     Indication: OSTEOPOROSIS
     Dosage: OTHER INDICATION: OSTEOPENIA
     Route: 048
  4. THYROID [Concomitant]
     Active Substance: LEVOTHYROXINE\LIOTHYRONINE
     Indication: THYROID DISORDER
     Dosage: THYROID MEDICATION
     Route: 065

REACTIONS (5)
  - Eructation [Not Recovered/Not Resolved]
  - Gastrooesophageal reflux disease [Unknown]
  - Flatulence [Not Recovered/Not Resolved]
  - Oesophageal disorder [Unknown]
  - Abdominal discomfort [Unknown]

NARRATIVE: CASE EVENT DATE: 20080501
